FAERS Safety Report 10035882 (Version 2)
Quarter: 2014Q1

REPORT INFORMATION
  Report Type: Spontaneous
  Country: PR (occurrence: PR)
  Receive Date: 20140325
  Receipt Date: 20140325
  Transmission Date: 20141002
  Serious: No
  Sender: FDA-Public Use
  Company Number: PR-BAXTER-2014BAX011119

PATIENT
  Sex: Female

DRUGS (14)
  1. 70% DEXTROSE INJECTION USP [Suspect]
     Indication: PARENTERAL NUTRITION
     Route: 065
     Dates: start: 20140228, end: 20140228
  2. INTRALIPID [Suspect]
     Indication: PARENTERAL NUTRITION
     Route: 065
     Dates: start: 20140228, end: 20140228
  3. POTASSIUM CHLORIDE 0.4MEQ/ML [Suspect]
     Indication: PARENTERAL NUTRITION
     Route: 065
     Dates: start: 20140228, end: 20140228
  4. STERILE WATER FOR INJECTION USP [Suspect]
     Indication: PARENTERAL NUTRITION
     Route: 065
     Dates: start: 20140228, end: 20140228
  5. 10% PREMASOL [Suspect]
     Indication: PARENTERAL NUTRITION
     Route: 065
     Dates: start: 20140228, end: 20140228
  6. NA CHLORIDE [Suspect]
     Indication: PARENTERAL NUTRITION
     Dosage: MEQ/ML
     Route: 065
     Dates: start: 20140228, end: 20140228
  7. MG SULFATE [Suspect]
     Indication: PARENTERAL NUTRITION
     Dosage: MEQ/ML
     Route: 065
     Dates: start: 20140228, end: 20140228
  8. NA ACETATE [Suspect]
     Indication: PARENTERAL NUTRITION
     Dosage: MEQ/ML
     Route: 065
     Dates: start: 20140228, end: 20140228
  9. MVI PEDIATRIC [Suspect]
     Indication: PARENTERAL NUTRITION
     Route: 065
     Dates: start: 20140228, end: 20140228
  10. K PHOSPHATE [Suspect]
     Indication: PARENTERAL NUTRITION
     Dosage: MEQ/ML
     Route: 065
     Dates: start: 20140228, end: 20140228
  11. L-CARNITIDINE [Suspect]
     Indication: PARENTERAL NUTRITION
     Dosage: MG/ML
     Route: 065
     Dates: start: 20140228, end: 20140228
  12. CA GLUCONATE [Suspect]
     Indication: PARENTERAL NUTRITION
     Route: 065
     Dates: start: 20140228, end: 20140228
  13. MULTITRACE [Suspect]
     Indication: PARENTERAL NUTRITION
     Route: 065
     Dates: start: 20140228, end: 20140228
  14. HEPARIN [Suspect]
     Indication: PARENTERAL NUTRITION
     Route: 065
     Dates: start: 20140228, end: 20140228

REACTIONS (3)
  - Product compounding quality issue [Recovered/Resolved]
  - Incorrect dose administered [Recovered/Resolved]
  - No adverse event [Recovered/Resolved]
